FAERS Safety Report 13855241 (Version 1)
Quarter: 2017Q3

REPORT INFORMATION
  Report Type: Spontaneous
  Country: US (occurrence: US)
  Receive Date: 20170810
  Receipt Date: 20170810
  Transmission Date: 20171127
  Serious: Yes (Other)
  Sender: FDA-Public Use
  Company Number: US-ABBVIE-17K-163-2061954-00

PATIENT
  Sex: Female

DRUGS (4)
  1. 6-MP [Suspect]
     Active Substance: MERCAPTOPURINE
     Indication: PRODUCT USED FOR UNKNOWN INDICATION
     Route: 065
  2. METHOTREXATE. [Suspect]
     Active Substance: METHOTREXATE
     Indication: PRODUCT USED FOR UNKNOWN INDICATION
     Route: 065
  3. CIMZIA [Concomitant]
     Active Substance: CERTOLIZUMAB PEGOL
     Indication: PRODUCT USED FOR UNKNOWN INDICATION
  4. HUMIRA [Suspect]
     Active Substance: ADALIMUMAB
     Indication: PRODUCT USED FOR UNKNOWN INDICATION
     Route: 058

REACTIONS (11)
  - Intestinal haemorrhage [Unknown]
  - Intestinal fistula [Unknown]
  - Hormone level abnormal [Unknown]
  - Drug ineffective [Unknown]
  - Intestinal polyp [Unknown]
  - Gastrointestinal ulcer [Unknown]
  - Gastrointestinal inflammation [Unknown]
  - Alopecia [Unknown]
  - Fear [Unknown]
  - Dizziness [Unknown]
  - Pancreatitis [Unknown]
